FAERS Safety Report 8680016 (Version 2)
Quarter: 2013Q3

REPORT INFORMATION
  Report Type: Report from Study
  Country: DE (occurrence: DE)
  Receive Date: 20120724
  Receipt Date: 20130801
  Transmission Date: 20140515
  Serious: Yes (Death, Hospitalization)
  Sender: FDA-Public Use
  Company Number: PHHO2010DE02165

PATIENT
  Age: 76 Year
  Sex: Male
  Weight: 173 kg

DRUGS (29)
  1. PLACEBO [Suspect]
     Indication: PULMONARY HYPERTENSION
     Route: 048
     Dates: start: 20060711, end: 20070104
  2. GLEEVEC [Suspect]
     Indication: PULMONARY HYPERTENSION
     Dosage: 100 MG, UNK
     Route: 048
     Dates: start: 20070105
  3. ALNA [Concomitant]
     Indication: BENIGN PROSTATIC HYPERPLASIA
  4. IRBESARTAN [Concomitant]
     Indication: HYPERTENSION
  5. NOVO-DIPIRADOL [Concomitant]
  6. ACC [Concomitant]
  7. TOREM [Concomitant]
     Indication: PULMONARY HYPERTENSION
  8. ALDACTONE [Concomitant]
     Indication: PULMONARY HYPERTENSION
  9. LASIX [Concomitant]
     Indication: OEDEMA
  10. PRAVASTATIN [Concomitant]
     Indication: HYPERCHOLESTEROLAEMIA
  11. CELESTAMIN [Concomitant]
     Indication: GOUT
  12. OXAZEPAM [Concomitant]
     Indication: SLEEP DISORDER
  13. BOSENTAN [Concomitant]
     Indication: PULMONARY HYPERTENSION
  14. OXYGEN [Concomitant]
     Indication: PULMONARY HYPERTENSION
  15. MARCUMAR [Concomitant]
     Indication: PULMONARY HYPERTENSION
  16. NOVALGIN [Concomitant]
     Indication: GOUT
  17. NOVODIGAL [Concomitant]
  18. XIPAMIDE [Concomitant]
  19. PANTOZOL [Concomitant]
  20. REVATIO [Concomitant]
  21. DECORTIN [Concomitant]
  22. ZACPAC [Concomitant]
  23. CIPROFLOXACIN [Concomitant]
  24. CLEXANE [Concomitant]
  25. MAGNESIUM [Concomitant]
  26. EUTHYROX [Concomitant]
  27. ROCEPHIN [Concomitant]
  28. SOBELIN [Concomitant]
  29. TAVANIC [Concomitant]

REACTIONS (17)
  - Cardiac failure [Fatal]
  - Disease progression [Fatal]
  - Syncope [Recovered/Resolved]
  - Rib fracture [Recovered/Resolved]
  - Asthenia [Recovered/Resolved]
  - Dyspnoea [Recovered/Resolved]
  - Lung infiltration [Recovered/Resolved]
  - Oxygen saturation decreased [Recovered/Resolved]
  - General physical health deterioration [Recovered/Resolved]
  - Dehydration [Recovered/Resolved]
  - Hypotension [Recovered/Resolved]
  - Blood creatinine increased [Recovered/Resolved]
  - Respiratory tract inflammation [Recovered/Resolved]
  - Pain [Recovered/Resolved]
  - C-reactive protein increased [Recovered/Resolved]
  - Constipation [Recovered/Resolved]
  - Nausea [Recovered/Resolved]
